FAERS Safety Report 10957124 (Version 1)
Quarter: 2015Q1

REPORT INFORMATION
  Report Type: Spontaneous
  Country: US (occurrence: US)
  Receive Date: 20150326
  Receipt Date: 20150326
  Transmission Date: 20150721
  Serious: No
  Sender: FDA-Public Use
  Company Number: US-PFIZER INC-2015100846

PATIENT
  Age: 13 Year
  Sex: Male
  Weight: 57 kg

DRUGS (1)
  1. ADVIL [Suspect]
     Active Substance: IBUPROFEN
     Indication: EAR PAIN
     Dosage: 200 MG, Q 4-6HRS AS NEEDED
     Route: 048
     Dates: start: 20150317

REACTIONS (1)
  - Glossodynia [Recovered/Resolved]

NARRATIVE: CASE EVENT DATE: 20150317
